FAERS Safety Report 6218930-7 (Version None)
Quarter: 2009Q2

REPORT INFORMATION
  Report Type: 
  Country: None (occurrence: None)
  Receive Date: 20090608
  Receipt Date: 20090529
  Transmission Date: 20091009
  Serious: Yes (Other)
  Sender: FDA-Public Use
  Company Number: US-AMGEN-QUU349292

PATIENT
  Sex: Male

DRUGS (6)
  1. NEULASTA [Suspect]
     Indication: DRUG USE FOR UNKNOWN INDICATION
     Route: 065
  2. NEUPOGEN [Suspect]
     Indication: NEUTROPENIA
     Dates: start: 20080101
  3. PROGRAF [Concomitant]
  4. CELLCEPT [Concomitant]
  5. VALCYTET [Concomitant]
  6. PEPCID [Concomitant]

REACTIONS (5)
  - ABDOMINAL DISTENSION [None]
  - BONE PAIN [None]
  - CHEST PAIN [None]
  - HEADACHE [None]
  - IMPAIRED GASTRIC EMPTYING [None]
